FAERS Safety Report 9894804 (Version 1)
Quarter: 2014Q1

REPORT INFORMATION
  Report Type: Spontaneous
  Country: KR (occurrence: KR)
  Receive Date: 20140213
  Receipt Date: 20140213
  Transmission Date: 20141002
  Serious: Yes (Other)
  Sender: FDA-Public Use
  Company Number: KR-BAXTER-2014BAX006453

PATIENT
  Age: 40 Year
  Sex: Male

DRUGS (23)
  1. FEIBA STIM4 [Suspect]
     Indication: HAEMOPHILIA
     Route: 065
     Dates: start: 20130603, end: 20130706
  2. FEIBA STIM4 [Suspect]
     Indication: HAEMORRHAGE INTRACRANIAL
     Route: 065
     Dates: start: 20130708, end: 20130708
  3. FEIBA STIM4 [Suspect]
     Indication: SUBDURAL HAEMATOMA
     Route: 065
     Dates: start: 20130711, end: 20130711
  4. FEIBA STIM4 [Suspect]
     Route: 065
     Dates: start: 20130712, end: 20130712
  5. FEIBA STIM4 [Suspect]
     Route: 065
     Dates: start: 20130719, end: 20130719
  6. FEIBA STIM4 [Suspect]
     Route: 065
     Dates: start: 20130724, end: 20130724
  7. FEIBA STIM4 [Suspect]
     Route: 065
     Dates: start: 20130729, end: 20130729
  8. FEIBA STIM4 [Suspect]
     Route: 065
     Dates: start: 20130809, end: 20130809
  9. FEIBA STIM4 [Suspect]
     Route: 065
     Dates: start: 20130814, end: 20130814
  10. FEIBA STIM4 [Suspect]
     Route: 065
     Dates: start: 20130821, end: 20130821
  11. FEIBA STIM4 [Suspect]
     Route: 065
     Dates: start: 20130828, end: 20130828
  12. NOVOSEVEN RT [Suspect]
     Indication: HAEMOPHILIA
     Dosage: 100-450 KIU AT 2-, 3-, 4-, AND 6-HOUR INTERVALS
     Route: 065
     Dates: start: 20130603, end: 20130608
  13. NOVOSEVEN RT [Suspect]
     Indication: SUBDURAL HAEMATOMA
     Dosage: 350 KIU AT 2-, 4-, 6-, AND 12-HOUR INTERVALS AS CONSERVATIVE MANAGEMENT
     Route: 065
     Dates: start: 20130608, end: 20130706
  14. NOVOSEVEN RT [Suspect]
     Indication: HAEMORRHAGE INTRACRANIAL
     Route: 065
     Dates: start: 20130708, end: 20130708
  15. NOVOSEVEN RT [Suspect]
     Route: 065
     Dates: start: 20130711, end: 20130711
  16. NOVOSEVEN RT [Suspect]
     Route: 065
     Dates: start: 20130712, end: 20130712
  17. NOVOSEVEN RT [Suspect]
     Route: 065
     Dates: start: 20130719, end: 20130719
  18. NOVOSEVEN RT [Suspect]
     Route: 065
     Dates: start: 20130724, end: 20130724
  19. NOVOSEVEN RT [Suspect]
     Route: 065
     Dates: start: 20130729, end: 20130729
  20. NOVOSEVEN RT [Suspect]
     Route: 065
     Dates: start: 20130809, end: 20130809
  21. NOVOSEVEN RT [Suspect]
     Route: 065
     Dates: start: 20130814, end: 20130814
  22. NOVOSEVEN RT [Suspect]
     Route: 065
     Dates: start: 20130821, end: 20130821
  23. NOVOSEVEN RT [Suspect]
     Route: 065
     Dates: start: 20130828, end: 20130828

REACTIONS (5)
  - Haemorrhage intracranial [Unknown]
  - Condition aggravated [Unknown]
  - Hydrocephalus [Unknown]
  - Joint swelling [Unknown]
  - Rectal haemorrhage [Unknown]
